FAERS Safety Report 21039611 (Version 1)
Quarter: 2022Q3

REPORT INFORMATION
  Report Type: Spontaneous
  Country: US (occurrence: US)
  Receive Date: 20220704
  Receipt Date: 20220704
  Transmission Date: 20221026
  Serious: Yes (Other)
  Sender: FDA-Public Use
  Company Number: US-BRISTOL-MYERS SQUIBB COMPANY-2022-065381

PATIENT
  Age: 81 Year
  Sex: Male

DRUGS (1)
  1. ELIQUIS [Suspect]
     Active Substance: APIXABAN
     Indication: Arterial occlusive disease
     Dosage: DOSE : 2.5 MG;     FREQ : TWICE A DAY
     Route: 065
     Dates: start: 2021

REACTIONS (2)
  - Neoplasm malignant [Unknown]
  - Intentional product use issue [Unknown]
